FAERS Safety Report 6623919-X (Version None)
Quarter: 2010Q1

REPORT INFORMATION
  Report Type: 
  Country: None (occurrence: None)
  Receive Date: 20100310
  Receipt Date: 20100227
  Transmission Date: 20100710
  Serious: Yes (Death, Hospitalization)
  Sender: FDA-Public Use
  Company Number: AU-SANOFI-AVENTIS-2010SA008415

PATIENT
  Age: 76 Year
  Sex: Male
  Weight: 89 kg

DRUGS (7)
  1. BLINDED THERAPY [Suspect]
     Route: 042
     Dates: start: 20100122, end: 20100122
  2. DOCETAXEL [Suspect]
     Route: 042
     Dates: start: 20100122, end: 20100122
  3. PREDNISOLONE [Suspect]
     Route: 048
     Dates: start: 20100122
  4. NEXIUM /UNK/ [Concomitant]
  5. COLOXYL [Concomitant]
  6. LACTULOSE [Concomitant]
  7. CALTRATE +D [Concomitant]
     Dates: start: 20100121

REACTIONS (1)
  - INTESTINAL ISCHAEMIA [None]
